FAERS Safety Report 4981614-7 (Version None)
Quarter: 2006Q2

REPORT INFORMATION
  Report Type: 
  Country: None (occurrence: None)
  Receive Date: 20060425
  Receipt Date: 20040409
  Transmission Date: 20061013
  Serious: Yes (Other)
  Sender: FDA-Public Use
  Company Number: PHEH2004US04087

PATIENT
  Age: 71 Year
  Sex: Female

DRUGS (11)
  1. ZOMETA [Suspect]
     Dosage: 4 MG, ONCE/SINGLE
     Dates: start: 20030827, end: 20030827
  2. CARBOPLATIN [Concomitant]
     Dosage: 490 MG OVER 30 MINUTES
     Dates: start: 20030625, end: 20030827
  3. LETROZOLE [Concomitant]
     Dosage: 2-5MG X 3 TREATMENTS
     Dates: start: 20030527, end: 20030529
  4. TAXOL [Concomitant]
     Dosage: 300 MG OVER 3 HOURS
     Dates: start: 20030625, end: 20030827
  5. DEXAMETHASONE [Concomitant]
     Dosage: 20MG X 4  TREATMENTS
     Dates: start: 20030625, end: 20030827
  6. DIPHENHYDRAMINE HCL [Concomitant]
     Dosage: 50 MG, ONCE/SINGLE
     Dates: start: 20030625, end: 20030625
  7. GRANISETRON [Concomitant]
     Dosage: 2 MG X 4 TREATMENTS
     Dates: start: 20030625, end: 20030827
  8. HYDROXYZINE HYDROCHLORIDE [Concomitant]
     Dosage: 25MG OVER 15 MINUTES
     Dates: start: 20030717, end: 20030827
  9. ONDANSETRON [Concomitant]
     Dosage: 8 MG WITHIN 2 TREATMENTS
     Dates: start: 20030519, end: 20030519
  10. RANITIDINE HYDROCHLORIDE [Concomitant]
     Dosage: 50 MG OVER 20 MINUTES
     Dates: start: 20030625, end: 20030827
  11. AREDIA [Suspect]
     Dosage: 90MG OVER 1-2 HOURS
     Dates: start: 20021210, end: 20030723

REACTIONS (1)
  - OSTEONECROSIS [None]
